FAERS Safety Report 4690058-7 (Version None)
Quarter: 2005Q2

REPORT INFORMATION
  Report Type: 
  Country: None (occurrence: None)
  Receive Date: 20050614
  Receipt Date: 20050531
  Transmission Date: 20051028
  Serious: Yes (Hospitalization)
  Sender: FDA-Public Use
  Company Number: 2005083322

PATIENT
  Age: 19 Year
  Sex: Female

DRUGS (2)
  1. DEPO-PROVERA [Suspect]
     Indication: CONTRACEPTION
     Dosage: 150 MG (150 MG, FIRST INJECTION), INTRAMUSCULAR
     Route: 030
     Dates: start: 20021114, end: 20021114
  2. DEPO-PROVERA [Suspect]
     Indication: CONTRACEPTION
     Dosage: 150 MG (150 MG, MOST RECENT INJECTION), INTRAMUSCULAR
     Route: 030
     Dates: start: 20040212, end: 20040212

REACTIONS (1)
  - INJECTION SITE ABSCESS [None]
